FAERS Safety Report 6633671-X (Version None)
Quarter: 2010Q1

REPORT INFORMATION
  Report Type: 
  Country: None (occurrence: None)
  Receive Date: 20100312
  Receipt Date: 20100308
  Transmission Date: 20100710
  Serious: Yes (Death)
  Sender: FDA-Public Use
  Company Number: MX-AMGEN-ICO358051

PATIENT
  Sex: Female

DRUGS (6)
  1. DARBEPOETIN ALFA [Suspect]
     Indication: RENAL FAILURE CHRONIC
     Dates: start: 20070213, end: 20071120
  2. ACETYLSALICYLIC ACID SRT [Concomitant]
     Route: 048
  3. PRAVASTATIN [Concomitant]
     Route: 048
  4. ENALAPRIL MALEATE [Concomitant]
     Route: 048
  5. TOLBUTAMIDE [Concomitant]
     Route: 048
  6. CHLORTHALIDONE [Concomitant]
     Route: 048

REACTIONS (1)
  - SUDDEN DEATH [None]
